FAERS Safety Report 14923251 (Version 1)
Quarter: 2018Q2

REPORT INFORMATION
  Report Type: Spontaneous
  Country: US (occurrence: US)
  Receive Date: 20180503
  Receipt Date: 20180503
  Transmission Date: 20180711
  Serious: Yes (Life-Threatening, Hospitalization, Disabling, Other)
  Sender: FDA-Public Use
  Company Number: None

PATIENT
  Age: 72 Year
  Sex: Female
  Weight: 63.45 kg

DRUGS (1)
  1. VALTREX [Suspect]
     Active Substance: VALACYCLOVIR HYDROCHLORIDE
     Indication: HERPES VIRUS INFECTION
     Route: 048

REACTIONS (13)
  - Renal failure [None]
  - Protein urine [None]
  - Headache [None]
  - Hypertension [None]
  - Malaise [None]
  - Thrombosis [None]
  - Lung operation [None]
  - Cardio-respiratory arrest [None]
  - Peripheral swelling [None]
  - Sepsis [None]
  - Focal segmental glomerulosclerosis [None]
  - Dialysis [None]
  - Seizure [None]

NARRATIVE: CASE EVENT DATE: 20080410
